FAERS Safety Report 7717396-5 (Version None)
Quarter: 2011Q3

REPORT INFORMATION
  Report Type: 
  Country: None (occurrence: None)
  Receive Date: 20110830
  Receipt Date: 20110815
  Transmission Date: 20111222
  Serious: Yes (Life-Threatening)
  Sender: FDA-Public Use
  Company Number: BR-CUBIST-2011S1000117

PATIENT
  Age: 21 Year
  Sex: Female

DRUGS (9)
  1. COLISTIN [Concomitant]
     Indication: CONVULSION
     Dates: start: 20100819
  2. IMIPENEM [Concomitant]
     Indication: CONVULSION
     Dates: start: 20100807, end: 20100903
  3. AMLODIPINE [Concomitant]
     Indication: CONVULSION
     Dates: start: 20100819
  4. ATENOLOL [Concomitant]
     Indication: CONVULSION
     Dates: start: 20100831
  5. RANITIDINE [Concomitant]
     Indication: PRODUCT USED FOR UNKNOWN INDICATION
  6. CLONAZINE [Concomitant]
     Indication: CONVULSION
     Dates: start: 20100802
  7. CUBICIN [Suspect]
     Indication: PRODUCT USED FOR UNKNOWN INDICATION
     Route: 042
     Dates: start: 20100902
  8. CLONIDINE HYDROCHLORIDE [Concomitant]
  9. SOLUTIONS FOR PARENTERAL NUTRITION [Concomitant]
     Dates: start: 20100901

REACTIONS (2)
  - HYPOXIC-ISCHAEMIC ENCEPHALOPATHY [None]
  - METABOLIC ENCEPHALOPATHY [None]
